FAERS Safety Report 18096220 (Version 1)
Quarter: 2020Q3

REPORT INFORMATION
  Report Type: Report from Study
  Country: JP (occurrence: JP)
  Receive Date: 20200731
  Receipt Date: 20200731
  Transmission Date: 20201105
  Serious: Yes (Death)
  Sender: FDA-Public Use
  Company Number: JP-ROCHE-2651376

PATIENT

DRUGS (1)
  1. ALECTINIB. [Suspect]
     Active Substance: ALECTINIB
     Indication: NON-SMALL CELL LUNG CANCER
     Dosage: DOSE UNKNOWN
     Route: 048
     Dates: start: 20141121

REACTIONS (1)
  - Cholangitis [Fatal]
